FAERS Safety Report 9593522 (Version 1)
Quarter: 2013Q3

REPORT INFORMATION
  Report Type: Spontaneous
  Country: US (occurrence: None)
  Receive Date: 20130930
  Receipt Date: 20130930
  Transmission Date: 20140515
  Serious: Yes (Other)
  Sender: FDA-Public Use
  Company Number: 1000045783

PATIENT
  Age: 63 Year
  Sex: Male

DRUGS (4)
  1. LINZESS [Suspect]
     Indication: IRRITABLE BOWEL SYNDROME
     Dosage: 290 MCG (290 MCG, 1 IN 1 D, ORAL
     Route: 048
     Dates: start: 201306, end: 201306
  2. CLONOPIN (CLONAZEPAM) (CLONAZEPAM) [Concomitant]
  3. GABAPENTIN (GABAPENTIN) (GABAPENTIN) [Concomitant]
  4. CABERGOLINE (CABERGOLINE) (CABERGOLINE) [Concomitant]

REACTIONS (5)
  - Drug ineffective [None]
  - Flatulence [None]
  - Abdominal pain upper [None]
  - Abdominal distension [None]
  - Vision blurred [None]
